FAERS Safety Report 5671374-9 (Version None)
Quarter: 2008Q1

REPORT INFORMATION
  Report Type: 
  Country: None (occurrence: None)
  Receive Date: 20080313
  Receipt Date: 20070802
  Transmission Date: 20080703
  Serious: Yes (Other)
  Sender: FDA-Public Use
  Company Number: MK-6036512

PATIENT
  Age: 74 Year
  Sex: Female

DRUGS (1)
  1. ETIDRONATE DISODIUM [Suspect]
     Indication: OSTEOPOROSIS
     Dosage: 400 MG;DAILY;

REACTIONS (5)
  - CONFUSIONAL STATE [None]
  - FEELING ABNORMAL [None]
  - HALLUCINATION, AUDITORY [None]
  - HALLUCINATION, OLFACTORY [None]
  - HALLUCINATION, VISUAL [None]
